FAERS Safety Report 5260010-1 (Version None)
Quarter: 2007Q1

REPORT INFORMATION
  Report Type: 
  Country: None (occurrence: None)
  Receive Date: 20070309
  Receipt Date: 20060202
  Transmission Date: 20070707
  Serious: Yes (Other)
  Sender: FDA-Public Use
  Company Number: US-GLAXOSMITHKLINE-A0591854A

PATIENT
  Age: 64 Year
  Sex: Female

DRUGS (1)
  1. EQUATE NICOTINE GUM 2MG [Suspect]
     Dosage: 2MG SEE DOSAGE TEXT

REACTIONS (5)
  - DRUG ABUSER [None]
  - NAUSEA [None]
  - ORAL DISCOMFORT [None]
  - PHARMACEUTICAL PRODUCT COMPLAINT [None]
  - VOMITING [None]
